FAERS Safety Report 7156135-6 (Version None)
Quarter: 2010Q4

REPORT INFORMATION
  Report Type: 
  Country: None (occurrence: None)
  Receive Date: 20101123
  Receipt Date: 20100908
  Transmission Date: 20110411
  Serious: Yes (Hospitalization)
  Sender: FDA-Public Use
  Company Number: 018673

PATIENT
  Sex: Female

DRUGS (2)
  1. CIMZIA [Suspect]
     Indication: CROHN'S DISEASE
     Dosage: (UNKNOWN DOSE SUBCUTANEOUS) (UNKNOWN DOSE SUBCUTANEOUS)
     Route: 058
     Dates: start: 20090901
  2. CIMZIA [Suspect]
     Indication: CROHN'S DISEASE
     Dosage: (UNKNOWN DOSE SUBCUTANEOUS) (UNKNOWN DOSE SUBCUTANEOUS)
     Route: 058
     Dates: start: 20100805

REACTIONS (2)
  - CHEST PAIN [None]
  - DYSPNOEA [None]
